FAERS Safety Report 15216106 (Version 1)
Quarter: 2018Q3

REPORT INFORMATION
  Report Type: Spontaneous
  Country: US (occurrence: US)
  Receive Date: 20180730
  Receipt Date: 20180730
  Transmission Date: 20181010
  Serious: Yes (Other)
  Sender: FDA-Public Use
  Company Number: US-PFIZER INC-2018301911

PATIENT
  Age: 9 Year
  Sex: Male

DRUGS (6)
  1. ETOPOSIDE. [Suspect]
     Active Substance: ETOPOSIDE
     Indication: RHABDOID TUMOUR
     Dosage: UNK, CYCLIC (THREE CYCLES OF CHEMOTHERAPY)
  2. CYCLOPHOSPHAMIDE. [Suspect]
     Active Substance: CYCLOPHOSPHAMIDE
     Indication: RHABDOID TUMOUR
     Dosage: UNK, CYCLIC (THREE CYCLES OF CHEMOTHERAPY)
  3. CARBOPLATIN. [Suspect]
     Active Substance: CARBOPLATIN
     Indication: RHABDOID TUMOUR
     Dosage: UNK, CYCLIC (THREE CYCLES OF CHEMOTHERAPY)
  4. IFOSFAMIDE. [Suspect]
     Active Substance: IFOSFAMIDE
     Indication: RHABDOID TUMOUR
     Dosage: UNK, CYCLIC (THREE CYCLES OF CHEMOTHERAPY)
  5. DOXORUBICIN HCL [Suspect]
     Active Substance: DOXORUBICIN HYDROCHLORIDE
     Indication: RHABDOID TUMOUR
     Dosage: UNK, CYCLIC (THREE CYCLES OF CHEMOTHERAPY)
  6. VINCRISTINE SULFATE. [Suspect]
     Active Substance: VINCRISTINE SULFATE
     Indication: RHABDOID TUMOUR
     Dosage: UNK, CYCLIC (THREE CYCLES OF CHEMOTHERAPY)

REACTIONS (5)
  - Nausea [Unknown]
  - Pancytopenia [Unknown]
  - Fanconi syndrome [Unknown]
  - Cystitis haemorrhagic [Unknown]
  - Vomiting [Unknown]
